FAERS Safety Report 14329687 (Version 3)
Quarter: 2020Q1

REPORT INFORMATION
  Report Type: Report from Study
  Country: CN (occurrence: CN)
  Receive Date: 20171227
  Receipt Date: 20200218
  Transmission Date: 20200409
  Serious: Yes (Death)
  Sender: FDA-Public Use
  Company Number: CN-PFIZER INC-2017546229

PATIENT
  Age: 6 Year
  Sex: Male

DRUGS (3)
  1. TIGECYCLINE. [Suspect]
     Active Substance: TIGECYCLINE
     Dosage: 1 MG/KG, 2X/DAY (MAINTENANCE DOSE, INFUSED OVER 1 HOUR, Q12H)
     Route: 042
  2. TIGECYCLINE. [Suspect]
     Active Substance: TIGECYCLINE
     Indication: PNEUMONIA
     Dosage: 2 MG/KG, UNK (LOAD DOSE, INFUSED OVER 1 HOUR)
     Route: 042
  3. SULPERAZONE [Suspect]
     Active Substance: CEFOPERAZONE SODIUM\SULBACTAM SODIUM
     Indication: PNEUMONIA
     Dosage: UNK

REACTIONS (2)
  - Drug ineffective for unapproved indication [Fatal]
  - Drug ineffective [Fatal]
